FAERS Safety Report 4673449-X (Version None)
Quarter: 2005Q2

REPORT INFORMATION
  Report Type: 
  Country: None (occurrence: None)
  Receive Date: 20050525
  Receipt Date: 20050301
  Transmission Date: 20051028
  Serious: Yes (Other)
  Sender: FDA-Public Use
  Company Number: BE-GLAXOSMITHKLINE-B0373829A

PATIENT
  Age: 72 Year
  Sex: Female

DRUGS (1)
  1. VENTOLIN HFA [Suspect]
     Indication: DRUG USE FOR UNKNOWN INDICATION
     Route: 055

REACTIONS (9)
  - ADVERSE EVENT [None]
  - ASTHMA [None]
  - BRONCHIAL HYPERACTIVITY [None]
  - DRUG INEFFECTIVE [None]
  - DRUG INTOLERANCE [None]
  - DYSPNOEA [None]
  - DYSPNOEA EXACERBATED [None]
  - PHARMACEUTICAL PRODUCT COMPLAINT [None]
  - WHEEZING [None]
